FAERS Safety Report 15483358 (Version 1)
Quarter: 2018Q4

REPORT INFORMATION
  Report Type: Spontaneous
  Country: US (occurrence: US)
  Receive Date: 20181010
  Receipt Date: 20181010
  Transmission Date: 20190205
  Serious: No
  Sender: FDA-Public Use
  Company Number: US-TARO-2018TAR00247

PATIENT
  Age: 20 Year
  Sex: Female
  Weight: 56.69 kg

DRUGS (4)
  1. 2 UNSPECIFIED MEDICATIONS WITHOUT GLUTEN [Concomitant]
     Active Substance: UNSPECIFIED INGREDIENT
  2. 8 UNSPECIFIED MEDICATIONS WITH GLUTEN [Suspect]
     Active Substance: UNSPECIFIED INGREDIENT
  3. MUPIROCIN OINTMENT USP 2% [Suspect]
     Active Substance: MUPIROCIN
     Dosage: UNK, 1X/DAY
     Route: 061
     Dates: start: 201803
  4. MUPIROCIN OINTMENT USP 2% [Suspect]
     Active Substance: MUPIROCIN
     Indication: BLISTER
     Dosage: UNK UNK, 3X/DAY
     Route: 061
     Dates: start: 20180318, end: 201803

REACTIONS (9)
  - Gastrointestinal disorder [Recovering/Resolving]
  - Oropharyngeal blistering [Recovering/Resolving]
  - Blister [Recovering/Resolving]
  - Eye swelling [Recovered/Resolved]
  - Off label use [Not Recovered/Not Resolved]
  - Rash papular [Recovering/Resolving]
  - Ulcer [Recovering/Resolving]
  - Inappropriate schedule of product administration [Not Recovered/Not Resolved]
  - Malaise [Recovering/Resolving]

NARRATIVE: CASE EVENT DATE: 201803
